FAERS Safety Report 8278563-8 (Version None)
Quarter: 2012Q2

REPORT INFORMATION
  Report Type: 
  Country: None (occurrence: None)
  Receive Date: 20120412
  Receipt Date: 20120130
  Transmission Date: 20120825
  Serious: No
  Sender: FDA-Public Use
  Company Number: US-ASTRAZENECA-2012SE06198

PATIENT
  Age: 88 Year
  Sex: Female

DRUGS (2)
  1. NEXIUM [Suspect]
     Indication: GASTROOESOPHAGEAL REFLUX DISEASE
     Route: 048
     Dates: start: 20040101
  2. NEXIUM [Suspect]
     Indication: EROSIVE OESOPHAGITIS
     Route: 048
     Dates: start: 20040101

REACTIONS (6)
  - HEARING IMPAIRED [None]
  - OESOPHAGEAL DISCOMFORT [None]
  - ABDOMINAL DISCOMFORT [None]
  - OFF LABEL USE [None]
  - MOBILITY DECREASED [None]
  - MALAISE [None]
